FAERS Safety Report 15783260 (Version 2)
Quarter: 2019Q1

REPORT INFORMATION
  Report Type: Spontaneous
  Country: US (occurrence: US)
  Receive Date: 20190102
  Receipt Date: 20190206
  Transmission Date: 20190417
  Serious: No
  Sender: FDA-Public Use
  Company Number: US-TEVA-2018-US-984669

PATIENT
  Sex: Female

DRUGS (3)
  1. AMLODIPINE AND VALSARTAN TABLETS [Suspect]
     Active Substance: AMLODIPINE\VALSARTAN
     Dosage: FORM STRENGTH: AMLODIPINE 5 MG AND VALSARTAN 320 MG
     Route: 065
  2. AMLODIPINE AND VALSARTAN TABLETS [Suspect]
     Active Substance: AMLODIPINE\VALSARTAN
     Dosage: FORM STRENGTH: AMLODIPINE 5 MG AND VALSARTAN 160 MG
     Route: 065
  3. AMLODIPINE AND VALSARTAN TABLETS [Suspect]
     Active Substance: AMLODIPINE\VALSARTAN
     Indication: BLOOD PRESSURE ABNORMAL
     Dosage: FORM STRENGTH: AMLODIPINE 5 MG AND VALSARTAN 160 MG
     Route: 065

REACTIONS (2)
  - Recalled product administered [Unknown]
  - Drug ineffective [Unknown]
